FAERS Safety Report 6404288-7 (Version None)
Quarter: 2009Q4

REPORT INFORMATION
  Report Type: 
  Country: None (occurrence: None)
  Receive Date: 20091013
  Receipt Date: 20090928
  Transmission Date: 20100525
  Serious: Yes (Hospitalization)
  Sender: FDA-Public Use
  Company Number: DSA_41540_2009

PATIENT
  Sex: Female

DRUGS (5)
  1. DILTIAZEM HYDROCHLORIDE [Suspect]
     Indication: HYPERTENSION
     Dosage: (200 MG QD ORAL)
     Route: 048
     Dates: start: 20020101, end: 20090724
  2. MODOPAR [Concomitant]
  3. TAHOR [Concomitant]
  4. ESOMEPRAZOLE MAGNESIUM [Concomitant]
  5. IRBESARTAN [Concomitant]

REACTIONS (1)
  - HYPONATRAEMIA [None]
